FAERS Safety Report 4593496-6 (Version None)
Quarter: 2005Q1

REPORT INFORMATION
  Report Type: 
  Country: None (occurrence: None)
  Receive Date: 20050224
  Receipt Date: 20040803
  Transmission Date: 20050727
  Serious: No
  Sender: FDA-Public Use
  Company Number: US-BRISTOL-MYERS SQUIBB COMPANY-12658449

PATIENT
  Age: 42 Year
  Sex: Male
  Weight: 68 kg

DRUGS (2)
  1. EXCEDRIN (MIGRAINE) [Suspect]
     Indication: HEADACHE
     Dosage: 8 TO 18 TABLETS PER DAY
  2. ALKA-SELTZER [Concomitant]
     Route: 048

REACTIONS (3)
  - DIARRHOEA [None]
  - DYSPNOEA [None]
  - MEDICATION ERROR [None]
